FAERS Safety Report 8742957 (Version 2)
Quarter: 2013Q2

REPORT INFORMATION
  Report Type: Report from Study
  Country: JP (occurrence: JP)
  Receive Date: 20120824
  Receipt Date: 20130401
  Transmission Date: 20140414
  Serious: Yes (Life-Threatening, Hospitalization, Other)
  Sender: FDA-Public Use
  Company Number: PHHY2012JP038856

PATIENT
  Age: 19 Year
  Sex: Male
  Weight: 52 kg

DRUGS (25)
  1. LEPONEX / CLOZARIL [Suspect]
     Indication: SCHIZOPHRENIA, PARANOID TYPE
     Dosage: 12.5 MG, DAILY
     Route: 048
     Dates: start: 20120119, end: 20120119
  2. LEPONEX / CLOZARIL [Suspect]
     Dosage: 25 MG, DAILY
     Route: 048
     Dates: start: 20120120, end: 20120122
  3. LEPONEX / CLOZARIL [Suspect]
     Dosage: 50 MG, DAILY
     Route: 048
     Dates: start: 20120123, end: 20120126
  4. LEPONEX / CLOZARIL [Suspect]
     Dosage: 75 MG, DAILY
     Route: 048
     Dates: start: 20120127, end: 20120129
  5. LEPONEX / CLOZARIL [Suspect]
     Dosage: 100 MG, DAILY
     Route: 048
     Dates: start: 20120130, end: 20120202
  6. LEPONEX / CLOZARIL [Suspect]
     Dosage: 125 MG, DAILY
     Route: 048
     Dates: start: 20120203, end: 20120205
  7. LEPONEX / CLOZARIL [Suspect]
     Dosage: 150 MG, DAILY
     Route: 048
     Dates: start: 20120206, end: 20120209
  8. LEPONEX / CLOZARIL [Suspect]
     Dosage: 175MG, DAILY
     Route: 048
     Dates: start: 20120210, end: 20120212
  9. LEPONEX / CLOZARIL [Suspect]
     Dosage: 200 MG, DAILY
     Route: 048
     Dates: start: 20120213, end: 20120216
  10. LEPONEX / CLOZARIL [Suspect]
     Dosage: 225 MG, DAILY
     Route: 048
     Dates: start: 20120217, end: 20120223
  11. LEPONEX / CLOZARIL [Suspect]
     Dosage: 275 MG, DAILY
     Route: 048
     Dates: start: 20120224, end: 20120301
  12. LEPONEX / CLOZARIL [Suspect]
     Dosage: 250 MG, DAILY
     Route: 048
     Dates: start: 20120302, end: 20120329
  13. LEPONEX / CLOZARIL [Suspect]
     Dosage: 300MG, DAILY
     Route: 048
     Dates: start: 20120330, end: 20120405
  14. LEPONEX / CLOZARIL [Suspect]
     Dosage: 375 MG, DAILY
     Route: 048
     Dates: start: 20120406, end: 20120412
  15. LEPONEX / CLOZARIL [Suspect]
     Dosage: 450 MG, DAILY
     Route: 048
     Dates: start: 20120413
  16. LEPONEX / CLOZARIL [Suspect]
     Dosage: 600 MG DAILY
     Route: 048
     Dates: start: 20120427, end: 20120428
  17. LEPONEX / CLOZARIL [Suspect]
     Dosage: 500 MG DAILY
     Route: 048
     Dates: start: 20120502, end: 20120507
  18. LEPONEX / CLOZARIL [Suspect]
     Dosage: 400 UNK, UNK
     Route: 048
     Dates: start: 20120508, end: 20120510
  19. LEPONEX / CLOZARIL [Suspect]
     Dosage: 300 UNK, UNK
     Route: 048
     Dates: start: 20120511, end: 20120524
  20. LEPONEX / CLOZARIL [Suspect]
     Dosage: 350 UNK, UNK
     Route: 048
     Dates: start: 20120525, end: 20120605
  21. LEPONEX / CLOZARIL [Suspect]
     Dosage: 375 UNK, UNK
     Route: 048
     Dates: start: 20120606, end: 20120626
  22. LEPONEX / CLOZARIL [Suspect]
     Dosage: 400 MG, UNK
     Route: 048
     Dates: start: 20120627
  23. ARTANE [Concomitant]
     Dosage: 8 MG
     Route: 048
     Dates: start: 20110908, end: 20120314
  24. LIMAS [Concomitant]
     Indication: WHITE BLOOD CELL COUNT ABNORMAL
     Dosage: 600 MG, UNK
     Route: 048
     Dates: start: 20120110
  25. LIMAS [Concomitant]
     Dosage: 60 MG, UNK
     Route: 048
     Dates: end: 20120703

REACTIONS (6)
  - Grand mal convulsion [Recovered/Resolved]
  - Loss of consciousness [Recovered/Resolved]
  - Enteritis infectious [Unknown]
  - Blood glucose increased [Unknown]
  - Tachycardia [Not Recovered/Not Resolved]
  - White blood cell count increased [Recovered/Resolved]
